FAERS Safety Report 5274186-3 (Version None)
Quarter: 2007Q1

REPORT INFORMATION
  Report Type: 
  Country: None (occurrence: None)
  Receive Date: 20070323
  Receipt Date: 20070320
  Transmission Date: 20070707
  Serious: Yes (Other)
  Sender: FDA-Public Use
  Company Number: US-SANOFI-SYNTHELABO-A03200701971

PATIENT
  Sex: Male
  Weight: 90.7 kg

DRUGS (12)
  1. DARVOCET [Concomitant]
     Dosage: UNK
     Route: 048
  2. MULTI-VITAMIN [Concomitant]
     Dosage: UNK
     Route: 048
  3. NEXIUM [Concomitant]
     Dosage: UNK
     Route: 048
  4. LOTREL [Concomitant]
     Dosage: UNK
     Route: 048
  5. STOOL SOFTENER [Concomitant]
     Dosage: UNK
     Route: 048
  6. CHILDREN'S ASPIRIN [Concomitant]
     Dosage: UNK
     Route: 048
  7. CLARITIN-D [Concomitant]
     Dosage: UNK
     Route: 048
  8. CLARINEX [Concomitant]
     Dosage: UNK
     Route: 048
  9. ZANAFLEX [Concomitant]
     Dosage: UNK
     Route: 048
  10. ACTIQ [Concomitant]
     Dosage: UNK
     Route: 048
  11. NEURONTIN [Concomitant]
     Dosage: UNK
     Route: 048
  12. AMBIEN [Suspect]
     Indication: INSOMNIA
     Route: 048

REACTIONS (2)
  - IMPAIRED DRIVING ABILITY [None]
  - MEDICATION ERROR [None]
